FAERS Safety Report 7049076-6 (Version None)
Quarter: 2010Q4

REPORT INFORMATION
  Report Type: 
  Country: None (occurrence: None)
  Receive Date: 20101007
  Receipt Date: 20100628
  Transmission Date: 20110411
  Serious: Yes (Other)
  Sender: FDA-Public Use
  Company Number: ACO_00842_2010

PATIENT
  Sex: Female
  Weight: 63.5036 kg

DRUGS (5)
  1. AMPYRA [Suspect]
     Indication: MULTIPLE SCLEROSIS
     Dosage: (10 MG QD, ONLY ONE DOSE TAKEN ORAL)
     Route: 048
     Dates: start: 20100506, end: 20100507
  2. 4AP [Suspect]
     Indication: PRODUCT USED FOR UNKNOWN INDICATION
     Dosage: (DF)
  3. BACLOFEN [Concomitant]
  4. ADDERALL 10 [Concomitant]
  5. TYSABRI [Concomitant]

REACTIONS (4)
  - CONVULSION [None]
  - GRAND MAL CONVULSION [None]
  - LOSS OF CONSCIOUSNESS [None]
  - SYNCOPE [None]
